FAERS Safety Report 16270542 (Version 2)
Quarter: 2019Q2

REPORT INFORMATION
  Report Type: Spontaneous
  Country: PT (occurrence: PT)
  Receive Date: 20190503
  Receipt Date: 20190521
  Transmission Date: 20190711
  Serious: Yes (Hospitalization, Other)
  Sender: FDA-Public Use
  Company Number: PT-PFIZER INC-2019186111

PATIENT
  Age: 36 Year
  Sex: Male

DRUGS (7)
  1. METHADONE [Suspect]
     Active Substance: METHADONE HYDROCHLORIDE
     Dosage: 80 MILLIGRAM, QD
     Route: 065
  2. ABILIFY MAINTENA [Suspect]
     Active Substance: ARIPIPRAZOLE
     Dosage: 200 MILLIGRAM, MONTHLY
     Route: 065
  3. QUETIAPINE FUMARATE. [Suspect]
     Active Substance: QUETIAPINE FUMARATE
     Dosage: 200 MILLIGRAM, QD (ONE AT NIGHT)
     Route: 065
  4. SERTRALINE HCL [Suspect]
     Active Substance: SERTRALINE HYDROCHLORIDE
     Dosage: 50 MILLIGRAM, QD
     Route: 065
  5. DIAZEPAM. [Suspect]
     Active Substance: DIAZEPAM
     Dosage: 5 MILLIGRAM
     Route: 065
  6. LANSOPRAZOLE. [Suspect]
     Active Substance: LANSOPRAZOLE
     Dosage: 30 MILLIGRAM, QD (1 DOSE ON FASTING)
     Route: 065
  7. RISPERIDONE. [Suspect]
     Active Substance: RISPERIDONE
     Indication: SCHIZOPHRENIA
     Dosage: 4 MILLIGRAM, QD
     Route: 065

REACTIONS (5)
  - Extrapyramidal disorder [Unknown]
  - Treatment noncompliance [Unknown]
  - Drug abuse [Unknown]
  - Somnolence [Unknown]
  - Schizophrenia [Unknown]
